FAERS Safety Report 14343929 (Version 4)
Quarter: 2018Q2

REPORT INFORMATION
  Report Type: Report from Study
  Country: US (occurrence: US)
  Receive Date: 20180102
  Receipt Date: 20180502
  Transmission Date: 20180711
  Serious: Yes (Hospitalization)
  Sender: FDA-Public Use
  Company Number: US-ACTELION-A-US2016-145343

PATIENT
  Age: 74 Year
  Sex: Female
  Weight: 46.26 kg

DRUGS (10)
  1. ADCIRCA [Concomitant]
     Active Substance: TADALAFIL
  2. SILDENAFIL CITRATE. [Concomitant]
     Active Substance: SILDENAFIL CITRATE
  3. TYVASO [Suspect]
     Active Substance: TREPROSTINIL
     Indication: PRODUCT USED FOR UNKNOWN INDICATION
     Dosage: 3 BREATHS
     Route: 065
     Dates: start: 20161103
  4. DIGOXIN. [Suspect]
     Active Substance: DIGOXIN
     Indication: PRODUCT USED FOR UNKNOWN INDICATION
     Route: 065
  5. TRACLEER [Suspect]
     Active Substance: BOSENTAN
     Indication: PULMONARY HYPERTENSION
     Dosage: 125 MG, BID
     Route: 048
     Dates: start: 20120425
  6. ORENITRAM [Suspect]
     Active Substance: TREPROSTINIL
     Indication: PRODUCT USED FOR UNKNOWN INDICATION
     Dosage: UNK
     Route: 065
     Dates: start: 201705
  7. ORENITRAM [Suspect]
     Active Substance: TREPROSTINIL
     Dosage: 0.625 MG, TID
     Route: 065
     Dates: start: 20170612
  8. TRACLEER [Suspect]
     Active Substance: BOSENTAN
     Dosage: UNK
     Route: 048
  9. WARFARIN [Concomitant]
     Active Substance: WARFARIN
  10. REMODULIN [Concomitant]
     Active Substance: TREPROSTINIL

REACTIONS (23)
  - Dyspnoea exertional [Unknown]
  - Palpitations [Unknown]
  - Headache [Unknown]
  - Balance disorder [Unknown]
  - Pulmonary hypertension [Unknown]
  - Fatigue [Unknown]
  - Dyspnoea [Not Recovered/Not Resolved]
  - Gait inability [Unknown]
  - Chest pain [Unknown]
  - Infusion site pain [Unknown]
  - Oropharyngeal pain [Not Recovered/Not Resolved]
  - Irritability [Unknown]
  - Dizziness [Unknown]
  - Nausea [Unknown]
  - Chest discomfort [Recovered/Resolved]
  - Cyanosis [Unknown]
  - Infusion site nodule [Unknown]
  - Catheter site mass [Unknown]
  - Pain [Unknown]
  - Infusion site erythema [Unknown]
  - Feeling abnormal [Unknown]
  - Diarrhoea [Not Recovered/Not Resolved]
  - Aphasia [Unknown]

NARRATIVE: CASE EVENT DATE: 20161103
